FAERS Safety Report 14657308 (Version 1)
Quarter: 2018Q1

REPORT INFORMATION
  Report Type: Spontaneous
  Country: CA (occurrence: CA)
  Receive Date: 20180319
  Receipt Date: 20180319
  Transmission Date: 20180509
  Serious: Yes (Other)
  Sender: FDA-Public Use
  Company Number: CA-AMGEN-CANSP2018036184

PATIENT
  Age: 21 Month
  Sex: Male

DRUGS (3)
  1. PROLIA [Suspect]
     Active Substance: DENOSUMAB
     Indication: OSTEOGENESIS IMPERFECTA
     Dosage: 1 MG/KG, Q3MO
     Route: 058
  2. PROLIA [Suspect]
     Active Substance: DENOSUMAB
     Dosage: 1 MG/KG, Q2MO
     Route: 058
  3. PROLIA [Suspect]
     Active Substance: DENOSUMAB
     Dosage: 1 MG/KG, Q6MO
     Route: 058

REACTIONS (5)
  - Off label use [Unknown]
  - Hypercalciuria [Unknown]
  - Bone density decreased [Recovering/Resolving]
  - Nephrocalcinosis [Unknown]
  - Hypercalcaemia [Recovered/Resolved]
